FAERS Safety Report 18135391 (Version 5)
Quarter: 2020Q4

REPORT INFORMATION
  Report Type: Report from Study
  Country: US (occurrence: US)
  Receive Date: 20200811
  Receipt Date: 20201004
  Transmission Date: 20210113
  Serious: No
  Sender: FDA-Public Use
  Company Number: NVSC2020US217902

PATIENT
  Age: 47 Year
  Sex: Female

DRUGS (1)
  1. ENTRESTO [Suspect]
     Active Substance: SACUBITRIL\VALSARTAN
     Indication: CARDIAC FAILURE
     Dosage: 24.26 MG, BID
     Route: 048
     Dates: start: 20200716

REACTIONS (5)
  - Hypotension [Unknown]
  - Dizziness [Unknown]
  - Weight increased [Unknown]
  - Weight decreased [Unknown]
  - Nervousness [Unknown]

NARRATIVE: CASE EVENT DATE: 202007
